FAERS Safety Report 15662135 (Version 1)
Quarter: 2018Q4

REPORT INFORMATION
  Report Type: Spontaneous
  Country: PL (occurrence: PL)
  Receive Date: 20181127
  Receipt Date: 20181127
  Transmission Date: 20190205
  Serious: Yes (Other)
  Sender: FDA-Public Use
  Company Number: PL-BIOMARINAP-PL-2018-120920

PATIENT
  Age: 6 Year
  Sex: Male
  Weight: 17 kg

DRUGS (1)
  1. ALDURAZYME [Suspect]
     Active Substance: LARONIDASE
     Indication: MUCOPOLYSACCHARIDOSIS I
     Dosage: 4 DOSAGE FORM, QD
     Route: 041

REACTIONS (3)
  - Urticaria [Unknown]
  - Erythema [Unknown]
  - Angioedema [Unknown]

NARRATIVE: CASE EVENT DATE: 20151020
